FAERS Safety Report 7535400-4 (Version None)
Quarter: 2011Q2

REPORT INFORMATION
  Report Type: 
  Country: None (occurrence: None)
  Receive Date: 20110609
  Receipt Date: 20080508
  Transmission Date: 20111010
  Serious: Yes (Death)
  Sender: FDA-Public Use
  Company Number: PHFR2008GB01303

PATIENT
  Sex: Male

DRUGS (3)
  1. CLOZAPINE [Suspect]
     Indication: SCHIZOPHRENIA
     Route: 048
     Dates: start: 20080206, end: 20080322
  2. OLANZAPINE [Concomitant]
     Dosage: 5 MG, UNK
     Route: 048
  3. CLOZAPINE [Suspect]
     Dosage: 400 MG,
     Route: 048
     Dates: start: 20080327

REACTIONS (2)
  - VENTRICULAR DYSFUNCTION [None]
  - CIRCULATORY COLLAPSE [None]
